FAERS Safety Report 8177928-2 (Version None)
Quarter: 2012Q1

REPORT INFORMATION
  Report Type: 
  Country: None (occurrence: None)
  Receive Date: 20120301
  Receipt Date: 20120227
  Transmission Date: 20120608
  Serious: Yes (Death, Life-Threatening, Hospitalization)
  Sender: FDA-Public Use
  Company Number: DK-B.I. PHARMACEUTICALS,INC./RIDGEFIELD-2011-SW-00377DB

PATIENT
  Sex: Female
  Weight: 64 kg

DRUGS (6)
  1. SIMVASTATIN [Concomitant]
     Dosage: 40 MG
  2. BISOPROLOL FUMARATE [Concomitant]
     Dosage: 10 MG
  3. CENTYL WITH KALIUMKLORID [Concomitant]
  4. PRADAXA [Suspect]
     Indication: ATRIAL FIBRILLATION
     Dosage: 220 MG
     Route: 048
     Dates: start: 20110823
  5. PULMICORT [Concomitant]
  6. DIGOXIN [Concomitant]
     Dosage: 625 MCG

REACTIONS (3)
  - COGNITIVE DISORDER [None]
  - PALLOR [None]
  - RECTAL HAEMORRHAGE [None]
